FAERS Safety Report 7202471-4 (Version None)
Quarter: 2010Q4

REPORT INFORMATION
  Report Type: 
  Country: None (occurrence: None)
  Receive Date: 20101229
  Receipt Date: 20101220
  Transmission Date: 20110411
  Serious: Yes (Other)
  Sender: FDA-Public Use
  Company Number: B0690772A

PATIENT
  Age: 23 Year
  Sex: Male

DRUGS (2)
  1. ALKERAN [Suspect]
     Route: 042
  2. BUSULPHAN [Concomitant]

REACTIONS (2)
  - LOCAL SWELLING [None]
  - SQUAMOUS CELL CARCINOMA [None]
